FAERS Safety Report 11780713 (Version 2)
Quarter: 2016Q1

REPORT INFORMATION
  Report Type: Spontaneous
  Country: BR (occurrence: BR)
  Receive Date: 20151126
  Receipt Date: 20160203
  Transmission Date: 20160525
  Serious: Yes (Death, Hospitalization)
  Sender: FDA-Public Use
  Company Number: BR-ROCHE-1667785

PATIENT
  Age: 56 Year
  Sex: Male

DRUGS (3)
  1. AVASTIN [Suspect]
     Active Substance: BEVACIZUMAB
     Indication: PRODUCT USED FOR UNKNOWN INDICATION
     Dosage: 2 CLYCLES ON 19-OCT-2015 AND 03-NOV-2015
     Route: 065
  2. AVASTIN [Suspect]
     Active Substance: BEVACIZUMAB
     Route: 065
     Dates: start: 20151019
  3. AVASTIN [Suspect]
     Active Substance: BEVACIZUMAB
     Route: 065
     Dates: start: 20151103

REACTIONS (4)
  - Large intestine perforation [Not Recovered/Not Resolved]
  - Death [Fatal]
  - Abdominal sepsis [Unknown]
  - Atrial fibrillation [Not Recovered/Not Resolved]
